FAERS Safety Report 13510871 (Version 1)
Quarter: 2017Q2

REPORT INFORMATION
  Report Type: Spontaneous
  Country: US (occurrence: US)
  Receive Date: 20170503
  Receipt Date: 20170503
  Transmission Date: 20170830
  Serious: Yes (Life-Threatening, Hospitalization)
  Sender: FDA-Public Use
  Company Number: None

PATIENT
  Age: 5 Year
  Sex: Male
  Weight: 19.9 kg

DRUGS (1)
  1. OPTIRAY 320 [Suspect]
     Active Substance: IOVERSOL
     Indication: COMPUTERISED TOMOGRAM
     Route: 042
     Dates: start: 20170429, end: 20170429

REACTIONS (12)
  - Erythema [None]
  - Chest pain [None]
  - Dehydration [None]
  - Diarrhoea [None]
  - Wheezing [None]
  - Anaphylactic reaction [None]
  - Dyspnoea [None]
  - Oxygen saturation decreased [None]
  - Vomiting [None]
  - Hepatic enzyme increased [None]
  - Screaming [None]
  - White blood cell count increased [None]

NARRATIVE: CASE EVENT DATE: 20170429
